FAERS Safety Report 19377110 (Version 1)
Quarter: 2021Q2

REPORT INFORMATION
  Report Type: Spontaneous
  Country: JP (occurrence: JP)
  Receive Date: 20210605
  Receipt Date: 20210605
  Transmission Date: 20210717
  Serious: Yes (Hospitalization)
  Sender: FDA-Public Use
  Company Number: JP-MACLEODS PHARMACEUTICALS US LTD-MAC2021031323

PATIENT

DRUGS (1)
  1. LOSARTAN 50 MG [Suspect]
     Active Substance: LOSARTAN
     Indication: HYPERTENSION
     Dosage: 50 MILLIGRAM, QD, AT 17 WEEKS GESTATION
     Route: 065

REACTIONS (4)
  - Contraindicated product prescribed [Unknown]
  - Maternal exposure during pregnancy [Unknown]
  - Stillbirth [Unknown]
  - Oligohydramnios [Unknown]
